FAERS Safety Report 14924774 (Version 2)
Quarter: 2018Q2

REPORT INFORMATION
  Report Type: Report from Study
  Country: None (occurrence: AU)
  Receive Date: 20180522
  Receipt Date: 20180601
  Transmission Date: 20180711
  Serious: Yes (Other)
  Sender: FDA-Public Use
  Company Number: AU-ABBVIE-18K-008-2363388-00

PATIENT
  Sex: Male

DRUGS (1)
  1. HUMIRA [Suspect]
     Active Substance: ADALIMUMAB
     Indication: RHEUMATOID ARTHRITIS
     Route: 058
     Dates: start: 20180313, end: 2018

REACTIONS (3)
  - Bone fragmentation [Not Recovered/Not Resolved]
  - Accident at work [Not Recovered/Not Resolved]
  - Back injury [Not Recovered/Not Resolved]

NARRATIVE: CASE EVENT DATE: 2018
